FAERS Safety Report 14870873 (Version 1)
Quarter: 2018Q2

REPORT INFORMATION
  Report Type: Spontaneous
  Country: GB (occurrence: GB)
  Receive Date: 20180509
  Receipt Date: 20180509
  Transmission Date: 20180711
  Serious: Yes (Other)
  Sender: FDA-Public Use
  Company Number: GB-PFIZER INC-2018185608

PATIENT
  Age: 7 Month
  Sex: Male
  Weight: 8 kg

DRUGS (5)
  1. DAKTACORT [Suspect]
     Active Substance: HYDROCORTISONE\MICONAZOLE NITRATE
     Dosage: UNK
     Route: 061
     Dates: start: 20180326
  2. CHLORAMPHENICOL [Concomitant]
     Active Substance: CHLORAMPHENICOL
     Dosage: 4 GTT, 1X/DAY
     Dates: start: 20180208, end: 20180213
  3. SALBUTAMOL [Concomitant]
     Active Substance: ALBUTEROL
     Dosage: 2 DF, UNK
     Route: 055
     Dates: start: 20180208, end: 20180310
  4. HYDROCORTISONE SODIUM SUCCINATE [Suspect]
     Active Substance: HYDROCORTISONE SODIUM SUCCINATE
     Dosage: UNK
     Dates: start: 20180326
  5. METANIUM /00598101/ [Concomitant]
     Dosage: 1 DF, AS NEEDED
     Dates: start: 20180326

REACTIONS (2)
  - Condition aggravated [Recovering/Resolving]
  - Dermatitis diaper [Recovering/Resolving]

NARRATIVE: CASE EVENT DATE: 20180326
